FAERS Safety Report 7539491-6 (Version None)
Quarter: 2011Q2

REPORT INFORMATION
  Report Type: 
  Country: None (occurrence: None)
  Receive Date: 20110609
  Receipt Date: 20110609
  Transmission Date: 20111010
  Serious: Yes (Death)
  Sender: FDA-Public Use
  Company Number: None

PATIENT
  Age: 64 Year
  Sex: Male

DRUGS (5)
  1. BICALUTAMIDE [Concomitant]
  2. SIMVASTATIN [Concomitant]
  3. REVLIMID [Suspect]
     Indication: MULTIPLE MYELOMA
     Dosage: REVLIMID 15MG X21D/28D ORALLY
     Route: 048
     Dates: start: 20100801, end: 20110101
  4. MEGESTROL ACETATE [Concomitant]
  5. CITALOPRAM [Concomitant]

REACTIONS (6)
  - NEUTROPHIL COUNT DECREASED [None]
  - NO THERAPEUTIC RESPONSE [None]
  - EPISTAXIS [None]
  - SUBDURAL HAEMORRHAGE [None]
  - PULMONARY EMBOLISM [None]
  - GENERAL PHYSICAL HEALTH DETERIORATION [None]
